FAERS Safety Report 7154497-7 (Version None)
Quarter: 2010Q4

REPORT INFORMATION
  Report Type: 
  Country: None (occurrence: None)
  Receive Date: 20101214
  Receipt Date: 20091102
  Transmission Date: 20110411
  Serious: No
  Sender: FDA-Public Use
  Company Number: US-AMGEN-KDL372512

PATIENT

DRUGS (6)
  1. ENBREL [Suspect]
     Indication: PRODUCT USED FOR UNKNOWN INDICATION
     Dosage: 50 MG, QWK
     Route: 058
  2. MELOXICAM [Concomitant]
     Dosage: 15 MG, UNK
  3. LISINOPRIL AND HYDROCHLOROTHIAZIDE [Concomitant]
     Dosage: UNK UNK, UNK
  4. SIMVASTATIN [Concomitant]
     Dosage: 40 MG, UNK
  5. CLOPIDOGREL BISULFATE [Concomitant]
     Dosage: 75 MG, UNK
  6. PIOGLITAZONE HCL [Concomitant]
     Dosage: 30 MG, UNK

REACTIONS (2)
  - DIARRHOEA [None]
  - DIZZINESS [None]
